FAERS Safety Report 15592764 (Version 1)
Quarter: 2018Q4

REPORT INFORMATION
  Report Type: Spontaneous
  Country: US (occurrence: US)
  Receive Date: 20181102
  Receipt Date: 20181102
  Transmission Date: 20190205
  Serious: No
  Sender: FDA-Public Use
  Company Number: None

PATIENT
  Sex: Male
  Weight: 89.9 kg

DRUGS (7)
  1. LENALIDOMIDE [Suspect]
     Active Substance: LENALIDOMIDE
     Indication: BONE MARROW DISORDER
     Dates: end: 20180508
  2. CARFILZOMIB [Suspect]
     Active Substance: CARFILZOMIB
     Dosage: ?          OTHER FREQUENCY:DAYS 1,2,8,9,15;?
  3. DEXAMETHASONE. [Suspect]
     Active Substance: DEXAMETHASONE
     Dosage: ?          OTHER FREQUENCY:DAYS 1,2,8,9,15,17;?
  4. CALCIUM CARBONATE (OS CAL) [Concomitant]
  5. LIPITOR [Concomitant]
     Active Substance: ATORVASTATIN CALCIUM
  6. ACYCLOVIR (ZOVIRAX) [Concomitant]
  7. CYCLOBENZAPRINE (FLEXERIL) [Concomitant]

REACTIONS (4)
  - Acute kidney injury [None]
  - Polyuria [None]
  - Pleural effusion [None]
  - Fluid overload [None]
